FAERS Safety Report 14818649 (Version 1)
Quarter: 2018Q2

REPORT INFORMATION
  Report Type: Spontaneous
  Country: US (occurrence: US)
  Receive Date: 20180427
  Receipt Date: 20180427
  Transmission Date: 20180711
  Serious: No
  Sender: FDA-Public Use
  Company Number: US-PFIZER INC-2017066416

PATIENT
  Age: 67 Year
  Sex: Male

DRUGS (4)
  1. CELEBREX [Suspect]
     Active Substance: CELECOXIB
     Indication: ARTHRITIS
     Dosage: UNK, 1X/DAY
  2. CELEBREX [Suspect]
     Active Substance: CELECOXIB
     Indication: GOUT
     Dosage: UNK, 2X/DAY
  3. CELEBREX [Suspect]
     Active Substance: CELECOXIB
     Dosage: 200 MG, 1X/DAY
     Route: 048
  4. VIAGRA [Concomitant]
     Active Substance: SILDENAFIL CITRATE
     Indication: LIBIDO DISORDER
     Dosage: 100 MG, UNK (2-3 TIMES A WEEK)
     Route: 048
     Dates: end: 201804

REACTIONS (4)
  - Peripheral swelling [Not Recovered/Not Resolved]
  - Feeling abnormal [Unknown]
  - Joint swelling [Unknown]
  - Muscle spasms [Unknown]

NARRATIVE: CASE EVENT DATE: 2018
